FAERS Safety Report 5623665-5 (Version None)
Quarter: 2008Q1

REPORT INFORMATION
  Report Type: 
  Country: None (occurrence: None)
  Receive Date: 20080129
  Receipt Date: 20070313
  Transmission Date: 20080703
  Serious: Yes (Hospitalization)
  Sender: FDA-Public Use
  Company Number: WAES 0703USA02389

PATIENT
  Age: 76 Year
  Sex: Female

DRUGS (1)
  1. PRIMAXIN [Suspect]
     Dosage: IV
     Route: 042

REACTIONS (1)
  - CONVULSION [None]
